FAERS Safety Report 7463320-2 (Version None)
Quarter: 2011Q2

REPORT INFORMATION
  Report Type: 
  Country: None (occurrence: None)
  Receive Date: 20110506
  Receipt Date: 20110427
  Transmission Date: 20111010
  Serious: Yes (Death, Hospitalization)
  Sender: FDA-Public Use
  Company Number: GB-WATSON-2011-04086

PATIENT
  Age: 89 Year
  Sex: Female

DRUGS (21)
  1. IRON [Concomitant]
     Indication: PRODUCT USED FOR UNKNOWN INDICATION
     Dosage: UNK
     Route: 048
     Dates: start: 20060927
  2. ROPINIROLE [Suspect]
     Indication: PARKINSON'S DISEASE
     Dosage: 1 MG, TID
     Route: 048
     Dates: start: 20070918
  3. FORTISIP [Concomitant]
     Dosage: UNK
     Dates: start: 20070918
  4. SINEMET [Concomitant]
     Indication: PRODUCT USED FOR UNKNOWN INDICATION
     Dosage: 250 UG, DAILY
     Route: 048
  5. SINEMET [Concomitant]
     Dosage: 62.5 UG, QID
     Dates: start: 20020430
  6. BISOPROLOL FUMARATE [Concomitant]
     Indication: PRODUCT USED FOR UNKNOWN INDICATION
     Dosage: 5 MG, DAILY
     Route: 065
     Dates: start: 20071211
  7. LEVODOPA [Concomitant]
     Indication: PARKINSON'S DISEASE
     Dosage: UNK
     Route: 065
  8. RISPERIDONE [Suspect]
     Indication: PARKINSON'S DISEASE
     Dosage: 9 MG, UNKNOWN
     Route: 048
  9. ROPINIROLE [Suspect]
     Dosage: 2 MG, TID
     Route: 048
  10. ROPINIROLE [Suspect]
     Dosage: 3 MG, DAILY
  11. DIGOXIN [Concomitant]
     Indication: PRODUCT USED FOR UNKNOWN INDICATION
     Dosage: 62.5 UG, DAILY
     Route: 048
     Dates: start: 20070918
  12. FORTISIP [Concomitant]
     Indication: PRODUCT USED FOR UNKNOWN INDICATION
     Dosage: UNK
     Route: 048
     Dates: start: 20071211
  13. FUROSEMIDE [Concomitant]
     Indication: PRODUCT USED FOR UNKNOWN INDICATION
     Dosage: 20 MG, DAILY
     Route: 048
  14. SINEMET CR [Concomitant]
     Indication: PRODUCT USED FOR UNKNOWN INDICATION
     Dosage: UNK
     Route: 048
     Dates: start: 20020719
  15. CARBIMAZOLE [Concomitant]
     Indication: PRODUCT USED FOR UNKNOWN INDICATION
     Dosage: 5 MG, DAILY
     Route: 048
     Dates: start: 20060630
  16. LACTULOSE [Concomitant]
     Indication: PRODUCT USED FOR UNKNOWN INDICATION
     Dosage: 10 ML, BID
     Route: 048
     Dates: start: 20070918
  17. ASPIRIN [Concomitant]
     Indication: PRODUCT USED FOR UNKNOWN INDICATION
     Dosage: 75 MG, DAILY
     Route: 048
     Dates: start: 20070918
  18. CARBIDOPA [Concomitant]
     Indication: PARKINSON'S DISEASE
     Dosage: UNK
  19. SINEMET [Concomitant]
     Dosage: UNK
     Dates: start: 20011022
  20. AMOXICILLIN TRIHYDRATE [Concomitant]
     Indication: PARKINSON'S DISEASE
     Dosage: 250 MG, TID
     Route: 048
  21. SPARTEINE SULFATE [Concomitant]
     Indication: PRODUCT USED FOR UNKNOWN INDICATION
     Dosage: UNK
     Route: 048

REACTIONS (4)
  - MEDICATION ERROR [None]
  - OFF LABEL USE [None]
  - DEATH [None]
  - WRONG DRUG ADMINISTERED [None]
